FAERS Safety Report 21701122 (Version 1)
Quarter: 2022Q4

REPORT INFORMATION
  Report Type: Spontaneous
  Country: DE (occurrence: DE)
  Receive Date: 20221208
  Receipt Date: 20221208
  Transmission Date: 20230112
  Serious: Yes (Death, Hospitalization)
  Sender: FDA-Public Use
  Company Number: DE-ROCHE-1002816

PATIENT
  Age: 37 Year
  Sex: Female
  Weight: 79 kg

DRUGS (3)
  1. PACLITAXEL [Suspect]
     Active Substance: PACLITAXEL
     Indication: Breast cancer metastatic
     Dosage: VIAL
     Route: 042
     Dates: start: 20110524, end: 20110921
  2. BEVACIZUMAB [Suspect]
     Active Substance: BEVACIZUMAB
     Indication: Breast cancer metastatic
     Dosage: VIAL, ON DAY ONE EVERY 21 DAYS
     Route: 042
     Dates: start: 20110524, end: 20110921
  3. CAPECITABINE [Suspect]
     Active Substance: CAPECITABINE
     Indication: Breast cancer metastatic
     Dosage: 500 FROM DAY 1 TO 14 EVERY 21 DAYS
     Route: 048
     Dates: start: 20110524, end: 20111024

REACTIONS (4)
  - Abdominal rigidity [Fatal]
  - Abdominal pain lower [Fatal]
  - Visual impairment [Unknown]
  - Influenza [Recovered/Resolved]

NARRATIVE: CASE EVENT DATE: 20110926
